FAERS Safety Report 19134427 (Version 3)
Quarter: 2021Q2

REPORT INFORMATION
  Report Type: Report from Study
  Country: US (occurrence: US)
  Receive Date: 20210414
  Receipt Date: 20210419
  Transmission Date: 20210717
  Serious: No
  Sender: FDA-Public Use
  Company Number: NVSC2021US083664

PATIENT
  Age: 34 Year
  Sex: Female
  Weight: 65.77 kg

DRUGS (1)
  1. ILARIS [Suspect]
     Active Substance: CANAKINUMAB
     Indication: PYREXIA
     Dosage: 150 MG, Q4W
     Route: 058
     Dates: start: 20210409

REACTIONS (2)
  - Injection site erythema [Recovered/Resolved]
  - Injection site vesicles [Recovered/Resolved]

NARRATIVE: CASE EVENT DATE: 20210410
